FAERS Safety Report 13429017 (Version 2)
Quarter: 2017Q2

REPORT INFORMATION
  Report Type: Spontaneous
  Country: NL (occurrence: NL)
  Receive Date: 20170411
  Receipt Date: 20170420
  Transmission Date: 20170830
  Serious: Yes (Hospitalization)
  Sender: FDA-Public Use
  Company Number: PHHY2017NL049060

PATIENT
  Age: 73 Year
  Sex: Male

DRUGS (1)
  1. BENZYLPENICILLIN [Suspect]
     Active Substance: PENICILLIN G
     Indication: SECONDARY SYPHILIS
     Dosage: 1 DF, UNK
     Route: 030

REACTIONS (1)
  - Jarisch-Herxheimer reaction [Recovered/Resolved]
